FAERS Safety Report 7021975-0 (Version None)
Quarter: 2010Q3

REPORT INFORMATION
  Report Type: 
  Country: None (occurrence: None)
  Receive Date: 20100930
  Receipt Date: 20100921
  Transmission Date: 20110219
  Serious: Yes (Other)
  Sender: FDA-Public Use
  Company Number: DE-JNJFOC-20100906791

PATIENT
  Sex: Female
  Weight: 55 kg

DRUGS (2)
  1. RISPERDAL [Suspect]
     Indication: PRODUCT USED FOR UNKNOWN INDICATION
     Route: 048
  2. ASPIRIN [Suspect]
     Indication: PRODUCT USED FOR UNKNOWN INDICATION
     Route: 048

REACTIONS (3)
  - MULTIPLE DRUG OVERDOSE INTENTIONAL [None]
  - SUICIDE ATTEMPT [None]
  - TREMOR [None]
